FAERS Safety Report 21198196 (Version 3)
Quarter: 2023Q4

REPORT INFORMATION
  Report Type: Report from Study
  Country: US (occurrence: US)
  Receive Date: 20220811
  Receipt Date: 20231018
  Transmission Date: 20240109
  Serious: Yes (Death, Hospitalization)
  Sender: FDA-Public Use
  Company Number: US-BIOGEN-2022BI01146034

PATIENT

DRUGS (1)
  1. TYSABRI [Suspect]
     Active Substance: NATALIZUMAB
     Indication: Graft versus host disease
     Route: 050

REACTIONS (3)
  - Enterococcal infection [Fatal]
  - Candida infection [Fatal]
  - Graft versus host disease [Fatal]
